FAERS Safety Report 6960883-8 (Version None)
Quarter: 2010Q3

REPORT INFORMATION
  Report Type: 
  Country: None (occurrence: None)
  Receive Date: 20100830
  Receipt Date: 20100813
  Transmission Date: 20110219
  Serious: Yes (Other)
  Sender: FDA-Public Use
  Company Number: AUR-APL-2010-01940

PATIENT
  Age: 89 Year
  Sex: Male
  Weight: 61.22 kg

DRUGS (7)
  1. HYDROCHLOROTHIAZIDE [Suspect]
     Indication: OEDEMA PERIPHERAL
     Dosage: 12.5 MG, DAILY
  2. SIMVASTATIN [Suspect]
     Indication: BLOOD CHOLESTEROL INCREASED
  3. TOVIAZ [Suspect]
     Indication: HYPERTONIC BLADDER
     Dosage: 8MG DAILY ORAL, 4 MG DAILY ORAL
     Route: 048
     Dates: start: 20100719, end: 20100701
  4. TOVIAZ [Suspect]
     Indication: HYPERTONIC BLADDER
     Dosage: 8MG DAILY ORAL, 4 MG DAILY ORAL
     Route: 048
     Dates: start: 20100101
  5. FLOMAX [Suspect]
  6. AVODART [Suspect]
  7. FINASTERIDE [Concomitant]

REACTIONS (3)
  - DRUG INTERACTION [None]
  - DYSURIA [None]
  - URINE FLOW DECREASED [None]
